FAERS Safety Report 24272216 (Version 5)
Quarter: 2024Q4

REPORT INFORMATION
  Report Type: Spontaneous
  Country: PL (occurrence: PL)
  Receive Date: 20240902
  Receipt Date: 20241010
  Transmission Date: 20250114
  Serious: Yes (Hospitalization)
  Sender: AUROBINDO
  Company Number: PL-AUROBINDO-AUR-APL-2024-043238

PATIENT
  Age: 31 Year
  Sex: Female

DRUGS (24)
  1. AMOXICILLIN\CLAVULANIC ACID [Interacting]
     Active Substance: AMOXICILLIN\CLAVULANIC ACID
     Indication: Oropharyngeal pain
     Dosage: UNK
     Route: 065
  2. AMOXICILLIN [Interacting]
     Active Substance: AMOXICILLIN
     Indication: Oropharyngeal pain
     Dosage: 3 GRAM
     Route: 065
  3. AMOXICILLIN [Interacting]
     Active Substance: AMOXICILLIN
     Dosage: 1 GRAM, 3 TIMES A DAY
     Route: 048
  4. AMLODIPINE [Interacting]
     Active Substance: AMLODIPINE BESYLATE
     Indication: Hypertension
     Dosage: 10 MILLIGRAM
     Route: 065
  5. MIRTAZAPINE [Interacting]
     Active Substance: MIRTAZAPINE
     Indication: Insomnia
     Dosage: 30 MILLIGRAM, ONCE A DAY(AT NIGHT)
     Route: 065
  6. MIRTAZAPINE [Interacting]
     Active Substance: MIRTAZAPINE
     Indication: Depression
  7. ACETAMINOPHEN [Interacting]
     Active Substance: ACETAMINOPHEN
     Indication: Oropharyngeal pain
     Dosage: 1 GRAM, 3 TIMES A DAY
     Route: 065
  8. RAMIPRIL [Interacting]
     Active Substance: RAMIPRIL
     Indication: Hypertension
     Dosage: 10 MILLIGRAM, ONCE A DAY
     Route: 065
  9. SERTRALINE [Interacting]
     Active Substance: SERTRALINE HYDROCHLORIDE
     Indication: Depression
     Dosage: 100 MILLIGRAM, ONCE A DAY (IN THE MORNING )
     Route: 065
  10. BUPROPION [Interacting]
     Active Substance: BUPROPION
     Indication: Product used for unknown indication
     Dosage: UNK
     Route: 065
  11. DICLOFENAC [Interacting]
     Active Substance: DICLOFENAC
     Indication: Oropharyngeal pain
     Dosage: UNK (MOUTHWASH)
     Route: 065
  12. KETOPROFEN [Interacting]
     Active Substance: KETOPROFEN
     Indication: Oropharyngeal pain
     Dosage: 100 MILLIGRAM(100 MG OF KETOPROFEN IN A COMBINATION WITH 2500 MG OF METAMIZOLE)
     Route: 065
  13. LIDOCAINE [Interacting]
     Active Substance: LIDOCAINE
     Indication: Oropharyngeal pain
     Dosage: UNK
     Route: 065
  14. METAMIZOLE [Interacting]
     Active Substance: METAMIZOLE
     Indication: Oropharyngeal pain
     Dosage: 2500 MILLIGRAM(INTRAVENOUS KETOPROFEN 100 MG IN COMBINATION WITH METHAMIZOLE 2500 MG)
     Route: 042
  15. NALTREXONE [Interacting]
     Active Substance: NALTREXONE
     Indication: Product used for unknown indication
     Dosage: UNK
     Route: 065
  16. SEMAGLUTIDE [Suspect]
     Active Substance: SEMAGLUTIDE
     Indication: Depression
     Dosage: UNK
     Route: 065
  17. SEMAGLUTIDE [Suspect]
     Active Substance: SEMAGLUTIDE
     Indication: Insomnia
  18. ZOLPIDEM TARTRATE [Interacting]
     Active Substance: ZOLPIDEM TARTRATE
     Indication: Insomnia
     Dosage: UNK
     Route: 065
  19. LIDOCAINE HYDROCHLORIDE [Suspect]
     Active Substance: LIDOCAINE HYDROCHLORIDE
     Indication: Oropharyngeal pain
     Dosage: UNK
     Route: 065
  20. DULOXETINE [Concomitant]
     Active Substance: DULOXETINE
     Indication: Product used for unknown indication
     Dosage: UNK
     Route: 065
  21. LIDOCAINE HYDROCHLORIDE [Concomitant]
     Active Substance: LIDOCAINE HYDROCHLORIDE
     Indication: Throat irritation
     Dosage: UNK
     Route: 065
  22. LIDOCAINE HYDROCHLORIDE [Concomitant]
     Active Substance: LIDOCAINE HYDROCHLORIDE
     Indication: Dysphagia
  23. TELMISARTAN [Concomitant]
     Active Substance: TELMISARTAN
  24. TIRZEPATIDE [Concomitant]
     Active Substance: TIRZEPATIDE
     Indication: Product used for unknown indication
     Dosage: UNK
     Route: 065

REACTIONS (11)
  - Condition aggravated [Recovering/Resolving]
  - Burning sensation [Recovering/Resolving]
  - Dysphagia [Recovering/Resolving]
  - Pain [Recovering/Resolving]
  - Oropharyngeal pain [Recovering/Resolving]
  - Throat irritation [Recovering/Resolving]
  - Drug interaction [Recovering/Resolving]
  - Drug ineffective [Unknown]
  - Emotional distress [Unknown]
  - Increased appetite [Unknown]
  - Weight increased [Unknown]
